FAERS Safety Report 4998083-3 (Version None)
Quarter: 2006Q2

REPORT INFORMATION
  Report Type: 
  Country: None (occurrence: None)
  Receive Date: 20060510
  Receipt Date: 20050308
  Transmission Date: 20061013
  Serious: Yes (Hospitalization, Disabling)
  Sender: FDA-Public Use
  Company Number: US-MERCK-0503USA01335

PATIENT
  Age: 60 Year
  Sex: Female
  Weight: 55 kg

DRUGS (16)
  1. VIOXX [Suspect]
     Indication: ARTHRITIS
     Route: 048
     Dates: start: 20030301, end: 20030301
  2. VIOXX [Suspect]
     Route: 048
     Dates: start: 20011001, end: 20021001
  3. VIOXX [Suspect]
     Route: 048
     Dates: start: 20021001, end: 20030831
  4. LIPITOR [Concomitant]
     Indication: BLOOD CHOLESTEROL INCREASED
     Route: 048
     Dates: start: 20010101
  5. DEPAKOTE [Concomitant]
     Indication: BIPOLAR DISORDER
     Route: 048
     Dates: start: 20011121
  6. DEPAKOTE [Concomitant]
     Indication: DEPRESSION
     Route: 048
     Dates: start: 20011121
  7. LORAZEPAM [Concomitant]
     Indication: ANXIETY
     Route: 048
     Dates: start: 20011013
  8. SKELAXIN [Concomitant]
     Indication: MUSCLE RELAXANT THERAPY
     Route: 065
  9. TOPAMAX [Concomitant]
     Indication: MIGRAINE
     Route: 065
  10. ESGIC [Concomitant]
     Indication: HEADACHE
     Route: 065
  11. NEXIUM [Concomitant]
     Indication: GASTRIC DISORDER
     Route: 065
  12. PREMPRO [Concomitant]
     Indication: MENOPAUSE
     Route: 065
  13. VALTREX [Concomitant]
     Indication: HERPES VIRUS INFECTION
     Route: 065
  14. NEURONTIN [Concomitant]
     Indication: NEURALGIA
     Route: 065
  15. NABUMETONE [Concomitant]
     Indication: ARTHRITIS
     Route: 065
  16. ZYRTEC [Concomitant]
     Indication: HYPERSENSITIVITY
     Route: 065

REACTIONS (6)
  - ANXIETY [None]
  - DEPRESSION [None]
  - DIABETES MELLITUS NON-INSULIN-DEPENDENT [None]
  - HYPERTHYROIDISM [None]
  - MYOCARDIAL INFARCTION [None]
  - URINARY TRACT INFECTION [None]
